FAERS Safety Report 14155923 (Version 1)
Quarter: 2017Q4

REPORT INFORMATION
  Report Type: Other
  Country: FR (occurrence: FR)
  Receive Date: 20171103
  Receipt Date: 20171103
  Transmission Date: 20180321
  Serious: Yes (Death, Other)
  Sender: FDA-Public Use
  Company Number: FR-VELOXIS PHARMACEUTICALS-2033131

PATIENT
  Age: 73 Year

DRUGS (3)
  1. NIVOLUMAB [Suspect]
     Active Substance: NIVOLUMAB
  2. EVEROLIMUS. [Suspect]
     Active Substance: EVEROLIMUS
  3. ENVARSUS XR [Suspect]
     Active Substance: TACROLIMUS
     Indication: IMMUNOSUPPRESSANT DRUG THERAPY

REACTIONS (3)
  - Superficial spreading melanoma stage unspecified [Fatal]
  - Thrombocytopenia [Unknown]
  - Coombs positive haemolytic anaemia [Unknown]
